FAERS Safety Report 14206379 (Version 2)
Quarter: 2017Q4

REPORT INFORMATION
  Report Type: Spontaneous
  Country: US (occurrence: US)
  Receive Date: 20171120
  Receipt Date: 20171121
  Transmission Date: 20180321
  Serious: Yes (Life-Threatening, Hospitalization)
  Sender: FDA-Public Use
  Company Number: US-ALLERGAN-1764966US

PATIENT
  Age: 7 Week
  Sex: Male

DRUGS (2)
  1. IRON DEXTRAN UNK [Suspect]
     Active Substance: IRON DEXTRAN
     Indication: PRODUCT USED FOR UNKNOWN INDICATION
     Dosage: 500 MG, UNK
     Route: 065
  2. DEFEROXAMINE [Suspect]
     Active Substance: DEFEROXAMINE\DEFEROXAMINE MESYLATE
     Indication: PRODUCT USED FOR UNKNOWN INDICATION
     Dosage: UNK
     Route: 042

REACTIONS (8)
  - Accidental overdose [Unknown]
  - Pneumothorax [Unknown]
  - Sepsis [Unknown]
  - Liver iron concentration abnormal [Unknown]
  - Iron overload [Unknown]
  - Respiratory distress [Unknown]
  - Pneumomediastinum [Unknown]
  - Incorrect dose administered [Unknown]
